FAERS Safety Report 7620211-1 (Version None)
Quarter: 2011Q3

REPORT INFORMATION
  Report Type: 
  Country: None (occurrence: None)
  Receive Date: 20110719
  Receipt Date: 20110706
  Transmission Date: 20111222
  Serious: Yes (Other)
  Sender: FDA-Public Use
  Company Number: PHHY2010JP58071

PATIENT
  Age: 79 Year
  Sex: Male

DRUGS (1)
  1. GLEEVEC [Suspect]
     Indication: CHRONIC MYELOID LEUKAEMIA
     Route: 048

REACTIONS (6)
  - LUNG DISORDER [None]
  - COMPUTERISED TOMOGRAM ABNORMAL [None]
  - BRONCHIAL POLYP [None]
  - PULMONARY GRANULOMA [None]
  - COUGH [None]
  - LUNG INFILTRATION [None]
